FAERS Safety Report 10351498 (Version 2)
Quarter: 2014Q3

REPORT INFORMATION
  Report Type: Report from Study
  Country: AR (occurrence: AR)
  Receive Date: 20140730
  Receipt Date: 20140815
  Transmission Date: 20150326
  Serious: Yes (Other)
  Sender: FDA-Public Use
  Company Number: PHHY2014AR093355

PATIENT
  Age: 53 Year
  Sex: Female

DRUGS (2)
  1. DIOVAN [Suspect]
     Active Substance: VALSARTAN
     Indication: HYPERTENSION
     Dosage: 1 DF (160 MG), DAILY
     Route: 048
     Dates: start: 201204, end: 20130908
  2. DIOVAN [Suspect]
     Active Substance: VALSARTAN
     Dosage: 1 DF (160 MG) DAILY
     Route: 048
     Dates: start: 201310

REACTIONS (1)
  - Diabetes mellitus [Recovering/Resolving]

NARRATIVE: CASE EVENT DATE: 201404
